FAERS Safety Report 8098719-7 (Version None)
Quarter: 2012Q1

REPORT INFORMATION
  Report Type: 
  Country: None (occurrence: None)
  Receive Date: 20120131
  Receipt Date: 20120126
  Transmission Date: 20120608
  Serious: Yes (Other)
  Sender: FDA-Public Use
  Company Number: ES-PFIZER INC-2012021525

PATIENT
  Age: 75 Year
  Sex: Male

DRUGS (1)
  1. LYRICA [Suspect]
     Dosage: 75 MG, 2X/DAY
     Route: 065
     Dates: start: 20111014, end: 20111028

REACTIONS (2)
  - MUSCLE CONTRACTIONS INVOLUNTARY [None]
  - MUSCLE CONTRACTURE [None]
